FAERS Safety Report 8773280 (Version 1)
Quarter: 2012Q4

REPORT INFORMATION
  Report Type: 
  Country: GB (occurrence: GB)
  Receive Date: 20120907
  Receipt Date: 20120907
  Transmission Date: 20130627
  Serious: Yes (Hospitalization, Other)
  Sender: FDA-Public Use
  Company Number: PHHY2012GB076365

PATIENT
  Age: 50 Year
  Sex: Male

DRUGS (6)
  1. METFORMIN [Suspect]
     Indication: DIABETES MELLITUS
     Route: 048
     Dates: start: 19980514, end: 20030207
  2. BECONASE AQUEOUS [Concomitant]
  3. CANDESARTAN [Concomitant]
  4. QUININE SULPHATE [Concomitant]
  5. SIMVASTATIN [Concomitant]
  6. MULTIVITAMIN AND MINERAL SUPPLEMENT [Concomitant]

REACTIONS (9)
  - Myocardial infarction [Recovered/Resolved with Sequelae]
  - Condition aggravated [Unknown]
  - Weight increased [Unknown]
  - Abdominal distension [Recovered/Resolved with Sequelae]
  - Muscular weakness [Unknown]
  - Decreased appetite [Recovered/Resolved]
  - Diarrhoea [Recovered/Resolved]
  - Abdominal pain upper [Recovered/Resolved]
  - Anxiety [None]
